FAERS Safety Report 16139169 (Version 2)
Quarter: 2019Q2

REPORT INFORMATION
  Report Type: Report from Study
  Country: JP (occurrence: JP)
  Receive Date: 20190401
  Receipt Date: 20190524
  Transmission Date: 20190711
  Serious: Yes (Other)
  Sender: FDA-Public Use
  Company Number: JP-ROCHE-2289630

PATIENT

DRUGS (5)
  1. PERTUZUMAB. [Suspect]
     Active Substance: PERTUZUMAB
     Indication: HER-2 POSITIVE BREAST CANCER
     Dosage: LOADING DOSE; OVER 60 MINUTE INFUSION
     Route: 042
  2. TRASTUZUMAB. [Suspect]
     Active Substance: TRASTUZUMAB
     Indication: HER-2 POSITIVE BREAST CANCER
     Dosage: LOADING DOSE; OVER 90 MINUTES
     Route: 042
  3. TRASTUZUMAB. [Suspect]
     Active Substance: TRASTUZUMAB
     Dosage: MAINTENANCE DOSE; OVER 30 MINUTES
     Route: 042
  4. ERIBULIN MESYLATE [Suspect]
     Active Substance: ERIBULIN MESYLATE
     Indication: HER-2 POSITIVE BREAST CANCER
     Dosage: ON DAYS 1 AND 8 OF EACH 21-DAY CYCLE
     Route: 042
  5. PERTUZUMAB. [Suspect]
     Active Substance: PERTUZUMAB
     Dosage: MAINTENANCE DOSE; OVER 30 MINUTE INFUSION
     Route: 042

REACTIONS (9)
  - Neutropenia [Unknown]
  - Decreased appetite [Unknown]
  - Myalgia [Unknown]
  - Anaemia [Unknown]
  - Peripheral sensory neuropathy [Unknown]
  - Neutrophil count decreased [Unknown]
  - White blood cell count decreased [Unknown]
  - Lung infection [Unknown]
  - Fatigue [Unknown]
